FAERS Safety Report 10400685 (Version 1)
Quarter: 2014Q3

REPORT INFORMATION
  Report Type: Spontaneous
  Country: US (occurrence: US)
  Receive Date: 20140821
  Receipt Date: 20140821
  Transmission Date: 20150326
  Serious: No
  Sender: FDA-Public Use
  Company Number: US-ASTRAZENECA-2014SE12860

PATIENT
  Age: 27 Year
  Sex: Female
  Weight: 70.3 kg

DRUGS (3)
  1. SYMBICORT [Suspect]
     Active Substance: BUDESONIDE\FORMOTEROL FUMARATE DIHYDRATE
     Indication: ASTHMA
     Dosage: 160 4.5MCG 2 PUFFS BID
     Route: 055
     Dates: start: 2010, end: 201310
  2. SYMBICORT [Suspect]
     Active Substance: BUDESONIDE\FORMOTEROL FUMARATE DIHYDRATE
     Indication: ASTHMA
     Dosage: 160 4.5MCG 1 PUFFS BID
     Route: 055
     Dates: start: 201310
  3. PROAIR HFA [Concomitant]
     Active Substance: ALBUTEROL SULFATE
     Indication: ASTHMA
     Route: 055

REACTIONS (3)
  - Off label use [Not Recovered/Not Resolved]
  - Hepatic enzyme increased [Unknown]
  - Adverse event [Unknown]

NARRATIVE: CASE EVENT DATE: 201310
